FAERS Safety Report 10245413 (Version 4)
Quarter: 2016Q4

REPORT INFORMATION
  Report Type: Report from Study
  Country: JP (occurrence: JP)
  Receive Date: 20140618
  Receipt Date: 20161226
  Transmission Date: 20170206
  Serious: Yes (Life-Threatening, Hospitalization, Other)
  Sender: FDA-Public Use
  Company Number: PHHY2014JP075367

PATIENT
  Age: 23 Year
  Sex: Female

DRUGS (7)
  1. CELLCEPT [Concomitant]
     Active Substance: MYCOPHENOLATE MOFETIL\MYCOPHENOLATE MOFETIL HYDROCHLORIDE
     Indication: HEART TRANSPLANT
     Dosage: 1500 MG, UNK
     Route: 048
     Dates: start: 20130512, end: 20130725
  2. MEVALOTIN [Concomitant]
     Active Substance: PRAVASTATIN SODIUM
     Indication: PRODUCT USED FOR UNKNOWN INDICATION
     Dosage: 5 MG, UNK
     Route: 048
     Dates: start: 20130512, end: 20130529
  3. CERTICAN [Suspect]
     Active Substance: EVEROLIMUS
     Indication: HEART TRANSPLANT
     Dosage: 1.5 MG, QD
     Route: 048
     Dates: start: 20130724, end: 20131229
  4. TACROLIMUS. [Suspect]
     Active Substance: TACROLIMUS
     Dosage: 4 MG, QD
     Route: 048
     Dates: start: 20130724, end: 20131229
  5. TACROLIMUS. [Suspect]
     Active Substance: TACROLIMUS
     Indication: HEART TRANSPLANT
     Dosage: 8 MG, QD
     Route: 048
     Dates: start: 20130512, end: 20130723
  6. CYCLOSPORIN [Concomitant]
     Active Substance: CYCLOSPORINE
     Indication: PRODUCT USED FOR UNKNOWN INDICATION
     Dosage: UNK
     Route: 065
  7. RENIVACE [Concomitant]
     Active Substance: ENALAPRIL
     Indication: PRODUCT USED FOR UNKNOWN INDICATION
     Dosage: 5 MG, UNK
     Route: 048
     Dates: start: 20130512, end: 20131229

REACTIONS (4)
  - Lymphoma [Recovering/Resolving]
  - Neutropenia [Unknown]
  - Immunosuppressant drug level decreased [Unknown]
  - Small intestinal perforation [Unknown]

NARRATIVE: CASE EVENT DATE: 20130918
